FAERS Safety Report 21748806 (Version 1)
Quarter: 2022Q4

REPORT INFORMATION
  Report Type: Spontaneous
  Country: US (occurrence: US)
  Receive Date: 20221219
  Receipt Date: 20221219
  Transmission Date: 20230113
  Serious: Yes (Other)
  Sender: FDA-Public Use
  Company Number: US-BAYER-2022A169959

PATIENT
  Age: 1 Year
  Sex: Female

DRUGS (1)
  1. A AND D [Suspect]
     Active Substance: DIMETHICONE\PETROLATUM\ZINC OXIDE
     Indication: Product used for unknown indication
     Route: 067

REACTIONS (1)
  - Accidental exposure to product packaging by child [Unknown]
